FAERS Safety Report 6114013-5 (Version None)
Quarter: 2009Q1

REPORT INFORMATION
  Report Type: 
  Country: None (occurrence: None)
  Receive Date: 20090312
  Receipt Date: 20090113
  Transmission Date: 20090719
  Serious: No
  Sender: FDA-Public Use
  Company Number: US-ABBOTT-09P-163-0497418-00

PATIENT
  Sex: Female
  Weight: 56.75 kg

DRUGS (1)
  1. LUPRON DEPOT [Suspect]
     Indication: ENDOMETRIOSIS
     Dates: start: 20081101

REACTIONS (3)
  - EYE SWELLING [None]
  - MYODESOPSIA [None]
  - VISUAL IMPAIRMENT [None]
